FAERS Safety Report 9767659 (Version 2)
Quarter: 2014Q1

REPORT INFORMATION
  Report Type: Report from Study
  Country: CN (occurrence: CN)
  Receive Date: 20131217
  Receipt Date: 20140103
  Transmission Date: 20141002
  Serious: Yes (Hospitalization)
  Sender: FDA-Public Use
  Company Number: CN-ASTELLAS-2013JP013853

PATIENT
  Age: 20 Year
  Sex: Male
  Weight: 57.5 kg

DRUGS (4)
  1. TACROLIMUS [Suspect]
     Indication: NEPHROTIC SYNDROME
     Dosage: 2 MG, BID
     Route: 048
     Dates: start: 20131201, end: 20131204
  2. TACROLIMUS [Suspect]
     Dosage: 1.5 MG, UNKNOWN/D
     Route: 048
     Dates: start: 20121019, end: 20131130
  3. TACROLIMUS [Suspect]
     Dosage: 1 MG, BID
     Route: 048
     Dates: start: 20131205, end: 201312
  4. TACROLIMUS [Suspect]
     Dosage: 1 MG, QOD
     Route: 048
     Dates: start: 20131220

REACTIONS (1)
  - Nephrotic syndrome [Recovered/Resolved]
